FAERS Safety Report 12960405 (Version 1)
Quarter: 2016Q4

REPORT INFORMATION
  Report Type: Report from Study
  Country: US (occurrence: US)
  Receive Date: 20161121
  Receipt Date: 20161121
  Transmission Date: 20170207
  Serious: Yes (Hospitalization)
  Sender: FDA-Public Use
  Company Number: US-MALLINCKRODT-T201605844

PATIENT
  Age: 11 Month
  Sex: Male

DRUGS (1)
  1. REPOSITORY CORTICOTROPIN INJECTION [Suspect]
     Active Substance: CORTICOTROPIN
     Indication: INFANTILE SPASMS
     Dosage: 80 UNITS ONCE DAILY FOR 2 WEEKS
     Route: 058
     Dates: start: 201611

REACTIONS (2)
  - Incorrect product storage [Unknown]
  - Infantile spasms [Recovered/Resolved]

NARRATIVE: CASE EVENT DATE: 201611
